FAERS Safety Report 5297477-9 (Version None)
Quarter: 2007Q2

REPORT INFORMATION
  Report Type: 
  Country: None (occurrence: None)
  Receive Date: 20070416
  Receipt Date: 20070411
  Transmission Date: 20071010
  Serious: Yes (Other)
  Sender: FDA-Public Use
  Company Number: JP-BRISTOL-MYERS SQUIBB COMPANY-13746979

PATIENT
  Age: 70 Year
  Sex: Female

DRUGS (2)
  1. TAXOL [Suspect]
     Indication: BREAST CANCER
     Route: 041
     Dates: start: 20040101
  2. RADIOTHERAPY [Concomitant]
     Indication: BREAST CANCER
     Dates: start: 20040101

REACTIONS (1)
  - ACUTE MYELOID LEUKAEMIA [None]
